FAERS Safety Report 4404609-0 (Version None)
Quarter: 2004Q3

REPORT INFORMATION
  Report Type: 
  Country: None (occurrence: None)
  Receive Date: 20040721
  Receipt Date: 20040721
  Transmission Date: 20050211
  Serious: Yes (Other)
  Sender: FDA-Public Use
  Company Number: None

PATIENT
  Age: 26 Year
  Sex: Female
  Weight: 89.8122 kg

DRUGS (3)
  1. PAROXETINE 40 MG TABLETS [Suspect]
     Indication: GENERALISED ANXIETY DISORDER
     Dosage: 40 MG DAILY
     Dates: start: 20031010
  2. PAROXETINE 40 MG TABLETS [Suspect]
     Indication: MAJOR DEPRESSION
     Dosage: 40 MG DAILY
     Dates: start: 20031010
  3. WELLBUTRIN SR [Concomitant]

REACTIONS (3)
  - INFLUENZA LIKE ILLNESS [None]
  - PHARMACEUTICAL PRODUCT COMPLAINT [None]
  - PREGNANCY [None]
